FAERS Safety Report 5305170-9 (Version None)
Quarter: 2007Q2

REPORT INFORMATION
  Report Type: 
  Country: None (occurrence: None)
  Receive Date: 20070416
  Receipt Date: 20070409
  Transmission Date: 20071010
  Serious: Yes (Other)
  Sender: FDA-Public Use
  Company Number: 163-21880-07040493

PATIENT
  Age: 78 Year
  Sex: Male

DRUGS (1)
  1. REVLIMID [Suspect]
     Indication: THYROID CANCER
     Dosage: 10 MG, 1 IN 1 D, ORAL
     Route: 048
     Dates: start: 20070115

REACTIONS (5)
  - ABASIA [None]
  - ASTHENIA [None]
  - DISEASE PROGRESSION [None]
  - OCULAR HYPERAEMIA [None]
  - RED BLOOD CELL COUNT DECREASED [None]
